FAERS Safety Report 6418801-7 (Version None)
Quarter: 2009Q4

REPORT INFORMATION
  Report Type: 
  Country: None (occurrence: None)
  Receive Date: 20091026
  Receipt Date: 20091014
  Transmission Date: 20100525
  Serious: Yes (Hospitalization)
  Sender: FDA-Public Use
  Company Number: 2009AM000449

PATIENT
  Sex: Male

DRUGS (9)
  1. SYMLIN [Suspect]
     Indication: TYPE 2 DIABETES MELLITUS
     Dosage: 60 MCG; QD; SC
     Route: 058
     Dates: start: 20091012
  2. SYMLIN [Suspect]
     Indication: TYPE 2 DIABETES MELLITUS
     Dosage: 30 MCG;BID;SC; 90 MCG; BID SC
     Route: 058
     Dates: start: 20071001, end: 20071101
  3. SYMLIN [Suspect]
     Indication: TYPE 2 DIABETES MELLITUS
     Dosage: 30 MCG;BID;SC; 90 MCG; BID SC
     Route: 058
     Dates: start: 20071101, end: 20080101
  4. SYMLIN [Suspect]
     Indication: TYPE 2 DIABETES MELLITUS
     Dosage: 30 MCG;BID;SC; 90 MCG; BID SC
     Route: 058
     Dates: start: 20080901, end: 20081101
  5. SYMLIN [Suspect]
     Indication: TYPE 2 DIABETES MELLITUS
     Dosage: 30 MCG;BID;SC; 90 MCG; BID SC
     Route: 058
     Dates: start: 20081201, end: 20091012
  6. NOVOLOG [Concomitant]
  7. LEVEMIR [Concomitant]
  8. LOPRESSOR [Concomitant]
  9. PRAVACHOL [Concomitant]

REACTIONS (4)
  - CHEST PAIN [None]
  - CORONARY ARTERY BYPASS [None]
  - DRUG PRESCRIBING ERROR [None]
  - NAUSEA [None]
